FAERS Safety Report 13656079 (Version 7)
Quarter: 2017Q3

REPORT INFORMATION
  Report Type: Report from Study
  Country: ES (occurrence: ES)
  Receive Date: 20170615
  Receipt Date: 20170907
  Transmission Date: 20171127
  Serious: Yes (Hospitalization)
  Sender: FDA-Public Use
  Company Number: ES-ROCHE-1905152

PATIENT
  Age: 68 Year
  Sex: Male
  Weight: 107 kg

DRUGS (24)
  1. ALDACTONE [Concomitant]
     Active Substance: SPIRONOLACTONE
     Indication: HYPERTENSION
  2. AUGMENTINE [Concomitant]
     Active Substance: AMOXICILLIN\CLAVULANATE POTASSIUM
     Indication: CELLULITIS
     Dosage: 875/125
     Route: 065
     Dates: start: 20170215, end: 20170221
  3. DOXAZOSINE [Concomitant]
     Active Substance: DOXAZOSIN MESYLATE
     Indication: HYPERTENSION
     Route: 065
     Dates: start: 20170329
  4. BEVACIZUMAB. [Suspect]
     Active Substance: BEVACIZUMAB
     Indication: NON-SMALL CELL LUNG CANCER STAGE IV
     Dosage: DATE OF THE MOST RECENT DOSE PRIOR TO THE EVENT ONSET: 16/FEB/2017 OF 1590 MG?PER PROTOCOL
     Route: 042
     Dates: start: 20160426
  5. PACLITAXEL. [Suspect]
     Active Substance: PACLITAXEL
     Indication: NON-SMALL CELL LUNG CANCER STAGE IV
     Dosage: DATE OF THE MOST RECENT DOSE PRIOR TO THE EVENT ONSET: 14/JUL/2016 OF 400 MG?PER PROTOCOL
     Route: 042
     Dates: start: 20160426
  6. ADIRO [Concomitant]
     Active Substance: ASPIRIN
     Indication: MYOCARDIAL ISCHAEMIA
  7. CRESTOR [Concomitant]
     Active Substance: ROSUVASTATIN CALCIUM
     Indication: DYSLIPIDAEMIA
  8. INSULINE [Concomitant]
     Active Substance: INSULIN NOS
     Indication: TYPE 2 DIABETES MELLITUS
  9. ENALAPRIL [Concomitant]
     Active Substance: ENALAPRIL
     Indication: HYPERTENSION
     Route: 065
     Dates: start: 20170329
  10. AUGMENTINE [Concomitant]
     Active Substance: AMOXICILLIN\CLAVULANATE POTASSIUM
     Route: 065
     Dates: start: 20170529
  11. CLINDAMICINA [Concomitant]
     Active Substance: CLINDAMYCIN HYDROCHLORIDE
     Indication: SKIN ULCER
     Route: 065
     Dates: start: 20170309, end: 20170313
  12. RASILEZ [Concomitant]
     Active Substance: ALISKIREN
     Indication: HYPERTENSION
     Route: 065
     Dates: end: 20170329
  13. MST (MORPHINE SULFATE) [Concomitant]
     Indication: BONE PAIN
     Route: 065
     Dates: start: 20160316
  14. INNOHEP [Concomitant]
     Active Substance: TINZAPARIN SODIUM
     Indication: DEEP VEIN THROMBOSIS
     Route: 065
     Dates: start: 20170308
  15. ATEZOLIZUMAB. [Suspect]
     Active Substance: ATEZOLIZUMAB
     Indication: NON-SMALL CELL LUNG CANCER STAGE IV
     Dosage: DATE OF THE MOST RECENT DOSE PRIOR TO THE EVENT ONSET: 16/FEB/2017
     Route: 042
     Dates: start: 20160426
  16. FUROSEMIDE. [Concomitant]
     Active Substance: FUROSEMIDE
     Indication: HYPERTENSION
  17. CARVEDILOL. [Concomitant]
     Active Substance: CARVEDILOL
     Indication: MYOCARDIAL ISCHAEMIA
  18. HIDROSALURETIL [Concomitant]
     Active Substance: HYDROCHLOROTHIAZIDE
     Indication: HYPERTENSION
     Route: 065
     Dates: end: 20170329
  19. CEFTRIAXONA [Concomitant]
     Active Substance: CEFTRIAXONE
     Indication: SKIN ULCER
     Route: 065
     Dates: start: 20170308, end: 20170309
  20. CARBOPLATIN. [Suspect]
     Active Substance: CARBOPLATIN
     Indication: NON-SMALL CELL LUNG CANCER STAGE IV
     Dosage: DATE OF THE MOST RECENT DOSE PRIOR TO THE EVENT ONSET: 14/JUL/2016 OF 750 MG?TO ACHIEVE AN INITIAL T
     Route: 042
     Dates: start: 20160426
  21. METFORMIN [Concomitant]
     Active Substance: METFORMIN HYDROCHLORIDE
     Indication: TYPE 2 DIABETES MELLITUS
  22. LEVOFLOXACINO [Concomitant]
     Active Substance: LEVOFLOXACIN
     Indication: CELLULITIS
     Route: 065
     Dates: start: 20170215, end: 20170221
  23. PIPERACILLIN/TAZOBACTAM [Concomitant]
     Active Substance: PIPERACILLIN SODIUM\TAZOBACTAM SODIUM
     Indication: SKIN ULCER
     Route: 065
     Dates: start: 20170309, end: 20170318
  24. OMEPRAZOL [Concomitant]
     Active Substance: OMEPRAZOLE
     Indication: DUODENAL ULCER

REACTIONS (3)
  - Adrenal insufficiency [Recovered/Resolved]
  - Pneumonia [Recovered/Resolved]
  - Pneumonitis [Recovered/Resolved]

NARRATIVE: CASE EVENT DATE: 20170308
